FAERS Safety Report 24751661 (Version 1)
Quarter: 2024Q4

REPORT INFORMATION
  Report Type: Spontaneous
  Country: US (occurrence: US)
  Receive Date: 20241219
  Receipt Date: 20241219
  Transmission Date: 20250114
  Serious: No
  Sender: PADAGIS
  Company Number: US-PADAGISUS-PAD-US-2024-2595

PATIENT

DRUGS (1)
  1. KETOCONAZOLE [Suspect]
     Active Substance: KETOCONAZOLE
     Indication: Seborrhoeic dermatitis
     Dosage: UNK
     Route: 065

REACTIONS (2)
  - Hair colour changes [Unknown]
  - Product use in unapproved indication [Unknown]
